FAERS Safety Report 4716989-7 (Version None)
Quarter: 2005Q3

REPORT INFORMATION
  Report Type: 
  Country: None (occurrence: None)
  Receive Date: 20050715
  Receipt Date: 20050711
  Transmission Date: 20060218
  Serious: Yes (Hospitalization, Disabling)
  Sender: FDA-Public Use
  Company Number: FRWYE824011JUL05

PATIENT
  Age: 57 Year
  Sex: Male

DRUGS (7)
  1. EFFEXOR [Suspect]
     Indication: DEPRESSION
     Dosage: 200 MG 1X PER 1 DAY SEVERAL YEARS
     Route: 048
     Dates: end: 20050125
  2. SOLIAN (AMISULPRIDE) [Concomitant]
  3. ATARAX [Concomitant]
  4. XANAX [Concomitant]
  5. ZOCOR [Concomitant]
  6. AOTAL (ACAMPROSTATE) [Concomitant]
  7. NEXIUM [Concomitant]

REACTIONS (9)
  - BLOOD IMMUNOGLOBULIN E INCREASED [None]
  - DERMATITIS [None]
  - ECZEMA [None]
  - EOSINOPHILIA [None]
  - HYPERKERATOSIS PALMARIS AND PLANTARIS [None]
  - NAIL HYPERTROPHY [None]
  - SKIN EXFOLIATION [None]
  - SKIN FISSURES [None]
  - WEIGHT DECREASED [None]
